FAERS Safety Report 15274353 (Version 1)
Quarter: 2018Q3

REPORT INFORMATION
  Report Type: Spontaneous
  Country: US (occurrence: US)
  Receive Date: 20180814
  Receipt Date: 20180814
  Transmission Date: 20181010
  Serious: No
  Sender: FDA-Public Use
  Company Number: US-009507513-1807USA007687

PATIENT
  Age: 58 Year
  Sex: Female

DRUGS (2)
  1. INVANZ [Suspect]
     Active Substance: ERTAPENEM SODIUM
     Indication: SKIN INFECTION
  2. INVANZ [Suspect]
     Active Substance: ERTAPENEM SODIUM
     Indication: BACTEROIDES INFECTION

REACTIONS (1)
  - Off label use [Unknown]
